FAERS Safety Report 19766409 (Version 1)
Quarter: 2021Q3

REPORT INFORMATION
  Report Type: Spontaneous
  Country: AU (occurrence: AU)
  Receive Date: 20210831
  Receipt Date: 20210831
  Transmission Date: 20211014
  Serious: Yes (Hospitalization, Other)
  Sender: FDA-Public Use
  Company Number: AU-SA-BI2013BI40939GD

PATIENT
  Age: 26 Year
  Sex: Female

DRUGS (4)
  1. RANITIDINE. [Suspect]
     Active Substance: RANITIDINE
     Indication: GASTROOESOPHAGEAL REFLUX DISEASE
     Dosage: UNK
     Route: 065
  2. SERTRALINE [Suspect]
     Active Substance: SERTRALINE HYDROCHLORIDE
     Indication: DEPRESSION
     Dosage: 50 MG,QD
     Route: 065
  3. SERTRALINE [Suspect]
     Active Substance: SERTRALINE HYDROCHLORIDE
     Dosage: 100 MG,QD
     Route: 065
  4. METOCLOPRAMIDE HYDROCHLORIDE. [Suspect]
     Active Substance: METOCLOPRAMIDE HYDROCHLORIDE
     Indication: MORNING SICKNESS
     Dosage: UNK
     Route: 065

REACTIONS (11)
  - Pruritus [Recovered/Resolved]
  - Hepatocellular injury [Recovered/Resolved]
  - Nausea [Recovered/Resolved]
  - Eosinophilia [Unknown]
  - Chromaturia [Recovered/Resolved]
  - Malaise [Recovered/Resolved]
  - Drug-induced liver injury [Recovered/Resolved]
  - Epigastric discomfort [Recovered/Resolved]
  - Vomiting [Recovered/Resolved]
  - Hepatitis [Recovered/Resolved]
  - Maternal exposure during pregnancy [Unknown]
